FAERS Safety Report 7209196-X (Version None)
Quarter: 2011Q1

REPORT INFORMATION
  Report Type: 
  Country: None (occurrence: None)
  Receive Date: 20110104
  Receipt Date: 20101215
  Transmission Date: 20110831
  Serious: Yes (Hospitalization, Congenital Anomaly)
  Sender: FDA-Public Use
  Company Number: A0684505A

PATIENT
  Sex: Male

DRUGS (7)
  1. UNISOM [Concomitant]
  2. ACETAMINOPHEN [Concomitant]
  3. PRENATAL VITAMINS [Concomitant]
  4. PAXIL [Suspect]
     Indication: PANIC ATTACK
     Dosage: 10MG PER DAY
     Dates: start: 19980101, end: 20030701
  5. PAROXETINE HYDROCHLORIDE [Suspect]
     Indication: PANIC ATTACK
     Dosage: 20MG PER DAY
     Dates: start: 20030917, end: 20050901
  6. HUMULIN R [Concomitant]
     Dates: start: 20030101
  7. VITAMIN B6 [Concomitant]

REACTIONS (5)
  - PATENT DUCTUS ARTERIOSUS [None]
  - VENTRICULAR SEPTAL DEFECT [None]
  - AORTIC VALVE INCOMPETENCE [None]
  - ATRIAL SEPTAL DEFECT [None]
  - DRUG EXPOSURE DURING PREGNANCY [None]
